FAERS Safety Report 12661162 (Version 1)
Quarter: 2016Q3

REPORT INFORMATION
  Report Type: Spontaneous
  Country: CH (occurrence: CH)
  Receive Date: 20160817
  Receipt Date: 20160817
  Transmission Date: 20161109
  Serious: Yes (Other)
  Sender: FDA-Public Use
  Company Number: CH-TEVA-683665ISR

PATIENT
  Age: 0 Year
  Sex: Female
  Weight: 2.44 kg

DRUGS (10)
  1. EPIRUBICIN [Suspect]
     Active Substance: EPIRUBICIN
     Indication: BREAST CANCER
     Dosage: 90 MG/M2 DAILY;
     Route: 064
     Dates: start: 20151027, end: 20151228
  2. PACLITAXEL. [Suspect]
     Active Substance: PACLITAXEL
     Indication: BREAST CANCER
     Dosage: 80 MG/M2 DAILY;
     Route: 064
     Dates: start: 20160121, end: 20160121
  3. MEPHAMESONE [Suspect]
     Active Substance: DEXAMETHASONE
     Indication: DRUG REACTION WITH EOSINOPHILIA AND SYSTEMIC SYMPTOMS
     Dosage: 8 MILLIGRAM DAILY;
     Route: 064
     Dates: start: 20160121, end: 20160121
  4. EMEND [Suspect]
     Active Substance: APREPITANT
     Indication: PROPHYLAXIS OF NAUSEA AND VOMITING
     Route: 064
     Dates: start: 20151027, end: 20151118
  5. TAVEGYL [Suspect]
     Active Substance: CLEMASTINE FUMARATE
     Indication: DRUG REACTION WITH EOSINOPHILIA AND SYSTEMIC SYMPTOMS
     Dosage: 2 MILLIGRAM DAILY;
     Route: 064
     Dates: start: 20160121, end: 20160121
  6. CYCLOPHOSPHAMIDE. [Suspect]
     Active Substance: CYCLOPHOSPHAMIDE
     Indication: BREAST CANCER
     Dosage: 600 MG/M2 DAILY;
     Route: 064
     Dates: start: 20151027, end: 20151228
  7. ZOFRAN [Suspect]
     Active Substance: ONDANSETRON HYDROCHLORIDE
     Indication: PROPHYLAXIS OF NAUSEA AND VOMITING
     Dosage: 8 MILLIGRAM DAILY;
     Route: 064
     Dates: start: 20160121, end: 20160121
  8. ALOXI [Suspect]
     Active Substance: PALONOSETRON HYDROCHLORIDE
     Indication: PROPHYLAXIS OF NAUSEA AND VOMITING
     Dosage: .25 MILLIGRAM DAILY;
     Route: 064
     Dates: start: 20151027, end: 20151228
  9. SOLU-MEDROL [Suspect]
     Active Substance: METHYLPREDNISOLONE SODIUM SUCCINATE
     Indication: PROPHYLAXIS OF NAUSEA AND VOMITING
     Dosage: 62.5 MILLIGRAM DAILY;
     Route: 064
     Dates: start: 20151027, end: 20151228
  10. ZANTAC [Suspect]
     Active Substance: RANITIDINE HYDROCHLORIDE
     Indication: DRUG REACTION WITH EOSINOPHILIA AND SYSTEMIC SYMPTOMS
     Dosage: 50 MILLIGRAM DAILY;
     Route: 064
     Dates: start: 20160121, end: 20160121

REACTIONS (2)
  - Exposure during pregnancy [Recovered/Resolved]
  - Premature baby [Unknown]

NARRATIVE: CASE EVENT DATE: 20151027
